FAERS Safety Report 6608884-3 (Version None)
Quarter: 2010Q1

REPORT INFORMATION
  Report Type: 
  Country: None (occurrence: None)
  Receive Date: 20100301
  Receipt Date: 20100215
  Transmission Date: 20100710
  Serious: Yes (Hospitalization)
  Sender: FDA-Public Use
  Company Number: DE-MYLANLABS-2010S1002463

PATIENT
  Age: 21 Year
  Sex: Female

DRUGS (1)
  1. AZATHIOPRINE [Suspect]
     Indication: COLITIS ULCERATIVE
     Route: 065

REACTIONS (6)
  - CHOLECYSTITIS ACUTE [None]
  - COLD TYPE HAEMOLYTIC ANAEMIA [None]
  - EPSTEIN-BARR VIRUS INFECTION [None]
  - HEPATITIS CHOLESTATIC [None]
  - INFECTIOUS MONONUCLEOSIS [None]
  - PNEUMONIA [None]
